FAERS Safety Report 5951079-7 (Version None)
Quarter: 2008Q4

REPORT INFORMATION
  Report Type: 
  Country: None (occurrence: None)
  Receive Date: 20081111
  Receipt Date: 20081111
  Transmission Date: 20090506
  Serious: Yes (Disabling)
  Sender: FDA-Public Use
  Company Number: None

PATIENT
  Sex: Female
  Weight: 69.8539 kg

DRUGS (1)
  1. PERRIGO WOMENS ONE SOURCE MV [Suspect]
     Dosage: ONCE MVI ONCE PO D PO
     Route: 048
     Dates: start: 20040101, end: 20070101

REACTIONS (2)
  - HYPERVITAMINOSIS [None]
  - NEUROPATHY PERIPHERAL [None]
